FAERS Safety Report 13656139 (Version 1)
Quarter: 2017Q2

REPORT INFORMATION
  Report Type: Spontaneous
  Country: ES (occurrence: ES)
  Receive Date: 20170615
  Receipt Date: 20170615
  Transmission Date: 20170830
  Serious: Yes (Hospitalization, Disabling)
  Sender: FDA-Public Use
  Company Number: ES-AUROBINDO-AUR-APL-2017-10256

PATIENT
  Age: 79 Year
  Sex: Female

DRUGS (3)
  1. HALOPERIDOL. [Suspect]
     Active Substance: HALOPERIDOL
     Indication: PSYCHOTIC DISORDER
     Dosage: 10 MG, UNK
     Route: 065
  2. OLANZAPINE 15MG [Suspect]
     Active Substance: OLANZAPINE
     Indication: PSYCHOTIC DISORDER
     Dosage: 15 MG FOR 12 MONTHS
     Route: 065
  3. RISPERIDONE. [Suspect]
     Active Substance: RISPERIDONE
     Indication: PSYCHOTIC DISORDER
     Dosage: 6 MG, UNK
     Route: 065

REACTIONS (14)
  - Choreoathetosis [Recovered/Resolved]
  - Delusion [Recovered/Resolved]
  - Movement disorder [Recovered/Resolved]
  - Bedridden [Recovered/Resolved]
  - Chorea [Recovered/Resolved]
  - Mastication disorder [Recovered/Resolved]
  - Psychomotor hyperactivity [Recovered/Resolved]
  - Akathisia [Recovered/Resolved]
  - Loss of personal independence in daily activities [Recovered/Resolved]
  - Cogwheel rigidity [Recovered/Resolved]
  - Atrophy [Recovered/Resolved]
  - Dyskinesia [Recovered/Resolved]
  - Abasia [Recovered/Resolved]
  - Gait disturbance [Recovered/Resolved]
